FAERS Safety Report 19222652 (Version 1)
Quarter: 2021Q2

REPORT INFORMATION
  Report Type: Spontaneous
  Country: CN (occurrence: CN)
  Receive Date: 20210506
  Receipt Date: 20210506
  Transmission Date: 20210717
  Serious: Yes (Death, Hospitalization, Other)
  Sender: FDA-Public Use
  Company Number: CN-ACCORD-224307

PATIENT
  Age: 56 Year
  Sex: Male

DRUGS (4)
  1. AZACITIDINE. [Suspect]
     Active Substance: AZACITIDINE
     Indication: ACUTE MYELOID LEUKAEMIA
     Dosage: MAR?2020, RECEIVED 100MG OF AZACITIDINE ON DAYS 1?7
     Route: 058
  2. TISLELIZUMAB [Suspect]
     Active Substance: TISLELIZUMAB
     Indication: ACUTE MYELOID LEUKAEMIA
     Dosage: ON DAY 1 INTRAVENOUSLY.
     Route: 042
  3. ESTAZOLAM. [Concomitant]
     Active Substance: ESTAZOLAM
     Indication: INSOMNIA
  4. ZOPICLONE [Concomitant]
     Active Substance: ZOPICLONE
     Indication: INSOMNIA

REACTIONS (5)
  - Adrenal insufficiency [Unknown]
  - Septic shock [Unknown]
  - Autoimmune encephalopathy [Unknown]
  - Herpes zoster [Unknown]
  - Graft versus host disease [Fatal]
